FAERS Safety Report 23216724 (Version 1)
Quarter: 2023Q4

REPORT INFORMATION
  Report Type: Report from Study
  Country: US (occurrence: US)
  Receive Date: 20231122
  Receipt Date: 20231122
  Transmission Date: 20240110
  Serious: Yes (Death, Other)
  Sender: FDA-Public Use
  Company Number: US-NOVITIUMPHARMA-2023USNVP02034

PATIENT
  Sex: Male

DRUGS (1)
  1. CARGLUMIC ACID [Suspect]
     Active Substance: CARGLUMIC ACID
     Indication: Propionic acidaemia
     Dosage: 5 CARGLUMIC ACID TABLETS DISSOLVED IN WATER VIA G-TUBE

REACTIONS (1)
  - Death [Fatal]
